FAERS Safety Report 19905608 (Version 1)
Quarter: 2021Q4

REPORT INFORMATION
  Report Type: Spontaneous
  Country: US (occurrence: US)
  Receive Date: 20211001
  Receipt Date: 20211001
  Transmission Date: 20220303
  Serious: Yes (Hospitalization)
  Sender: FDA-Public Use
  Company Number: None

PATIENT
  Age: 87 Year
  Sex: Male
  Weight: 78.75 kg

DRUGS (21)
  1. REGEN-COV [Suspect]
     Active Substance: CASIRIVIMAB\IMDEVIMAB
     Indication: COVID-19
     Dosage: ?          OTHER FREQUENCY:ONCE;
     Route: 042
     Dates: start: 20210922, end: 20210922
  2. ALBUTEROL [Concomitant]
     Active Substance: ALBUTEROL
     Dates: start: 20210926
  3. DEXTROSE [Concomitant]
     Active Substance: DEXTROSE
     Dates: start: 20210926
  4. Insulin Lispro Injection [Concomitant]
     Dates: start: 20210927
  5. TIZANIDINE [Concomitant]
     Active Substance: TIZANIDINE
     Dates: start: 20210926
  6. DOXYCYCLINE HYCLATE [Concomitant]
     Active Substance: DOXYCYCLINE HYCLATE
     Dates: start: 20210929
  7. SITAGLIPTIN [Concomitant]
     Active Substance: SITAGLIPTIN
     Dates: start: 20210930
  8. SENNA [Concomitant]
     Active Substance: SENNA LEAF\SENNOSIDES\SENNOSIDES A AND B
     Dates: start: 20210930, end: 20210930
  9. DEXTROMETHORPHAN\GUAIFENESIN [Concomitant]
     Active Substance: DEXTROMETHORPHAN\GUAIFENESIN
     Dates: start: 20210926
  10. METFORMIN [Concomitant]
     Active Substance: METFORMIN HYDROCHLORIDE
     Dates: start: 20180503
  11. Dexamethasone 6 mg (DECADRON) [Concomitant]
     Dates: start: 20210927
  12. CHOLECALCIFEROL [Concomitant]
     Active Substance: CHOLECALCIFEROL
     Dates: start: 20210926
  13. ENOXAPARIN [Concomitant]
     Active Substance: ENOXAPARIN
     Dates: start: 20210926
  14. EPINEPHRINE [Concomitant]
     Active Substance: EPINEPHRINE
     Dates: start: 20210922
  15. PROCHLORPERAZINE [Concomitant]
     Active Substance: PROCHLORPERAZINE
     Dates: start: 20210922
  16. ONDANSETRON [Concomitant]
     Active Substance: ONDANSETRON
     Dates: start: 20210922
  17. METOCLOPRAMIDE [Concomitant]
     Active Substance: METOCLOPRAMIDE
     Dates: start: 20210922
  18. ACETAMINOPHEN [Concomitant]
     Active Substance: ACETAMINOPHEN
     Dates: start: 20210922
  19. GLUCAGON [Concomitant]
     Active Substance: GLUCAGON
     Dates: start: 20210926
  20. BENZONATATE [Concomitant]
     Active Substance: BENZONATATE
     Dates: start: 20210926
  21. PREGABALIN [Concomitant]
     Active Substance: PREGABALIN
     Dates: start: 20210926

REACTIONS (9)
  - Chills [None]
  - Anaemia [None]
  - Dyspnoea [None]
  - Cough [None]
  - Fatigue [None]
  - Malaise [None]
  - Asthenia [None]
  - Decreased appetite [None]
  - Chest X-ray abnormal [None]

NARRATIVE: CASE EVENT DATE: 20210926
